FAERS Safety Report 10760860 (Version 3)
Quarter: 2015Q1

REPORT INFORMATION
  Report Type: Spontaneous
  Country: JP (occurrence: JP)
  Receive Date: 20150204
  Receipt Date: 20150326
  Transmission Date: 20150721
  Serious: Yes (Death, Life-Threatening, Hospitalization, Other)
  Sender: FDA-Public Use
  Company Number: JP-ASTRAZENECA-2015SE10688

PATIENT
  Age: 85 Year
  Sex: Male

DRUGS (15)
  1. QUETIAPINE [Suspect]
     Active Substance: QUETIAPINE
     Indication: PRODUCT USED FOR UNKNOWN INDICATION
     Dosage: 50 MG, THREE TIMES A DAY, GENERIC QUETIAPINE
     Route: 048
  2. DONEPEZIL HYDROCHLORIDE. [Concomitant]
     Active Substance: DONEPEZIL HYDROCHLORIDE
  3. FUROSEMIDE. [Concomitant]
     Active Substance: FUROSEMIDE
     Route: 048
  4. ELIQUIS [Concomitant]
     Active Substance: APIXABAN
  5. SPIRONOLACTONE. [Concomitant]
     Active Substance: SPIRONOLACTONE
     Route: 048
  6. HALCION [Concomitant]
     Active Substance: TRIAZOLAM
  7. CIBENOL [Suspect]
     Active Substance: CIFENLINE
     Indication: ATRIAL FIBRILLATION
     Route: 048
  8. APLACE [Concomitant]
     Active Substance: TROXIPIDE
     Route: 048
  9. CIBENOL [Suspect]
     Active Substance: CIFENLINE
     Indication: TACHYARRHYTHMIA
     Route: 048
  10. RISUMIC [Concomitant]
     Active Substance: AMEZINIUM METILSULFATE
     Route: 048
  11. ETIZOLAM [Concomitant]
     Active Substance: ETIZOLAM
  12. SENNOSIDE [Concomitant]
     Active Substance: SENNOSIDES
  13. FEBURIC [Concomitant]
     Active Substance: FEBUXOSTAT
     Route: 048
  14. NEXIUM [Concomitant]
     Active Substance: ESOMEPRAZOLE MAGNESIUM
     Route: 048
  15. TERNELIN [Concomitant]
     Active Substance: TIZANIDINE
     Route: 048

REACTIONS (16)
  - Blood potassium increased [Unknown]
  - Fibrin D dimer increased [Unknown]
  - Red blood cell count decreased [Unknown]
  - Blood glucose decreased [Unknown]
  - C-reactive protein increased [Unknown]
  - Prothrombin level decreased [Unknown]
  - Cardio-respiratory arrest [Unknown]
  - Death [Fatal]
  - Nuchal rigidity [Unknown]
  - Blood creatine phosphokinase decreased [Unknown]
  - Haematocrit decreased [Unknown]
  - Troponin I increased [Unknown]
  - Blood urea increased [Unknown]
  - Brain natriuretic peptide increased [Unknown]
  - Blood albumin decreased [Unknown]
  - Haemoglobin decreased [Unknown]

NARRATIVE: CASE EVENT DATE: 20150106
